FAERS Safety Report 4566839-7 (Version None)
Quarter: 2005Q1

REPORT INFORMATION
  Report Type: 
  Country: None (occurrence: None)
  Receive Date: 20050201
  Receipt Date: 20020418
  Transmission Date: 20050727
  Serious: Yes (Other)
  Sender: FDA-Public Use
  Company Number: US-BRISTOL-MYERS SQUIBB COMPANY-11834728

PATIENT
  Age: 31 Year
  Sex: Female

DRUGS (5)
  1. STADOL [Suspect]
     Route: 045
     Dates: start: 19961122, end: 19970423
  2. PROPOXYPHENE NAPSYLATE [Concomitant]
  3. CEFAZOLIN [Concomitant]
  4. ACETAMINOPHEN AND CODEINE PHOSPHATE [Concomitant]
  5. ULTRAM [Concomitant]

REACTIONS (1)
  - DEPENDENCE [None]
